FAERS Safety Report 12204243 (Version 2)
Quarter: 2016Q2

REPORT INFORMATION
  Report Type: Spontaneous
  Country: KR (occurrence: KR)
  Receive Date: 20160323
  Receipt Date: 20160405
  Transmission Date: 20160815
  Serious: Yes (Death, Life-Threatening, Hospitalization)
  Sender: FDA-Public Use
  Company Number: KR-ASTRAZENECA-2016SE29878

PATIENT
  Age: 89 Year
  Sex: Male

DRUGS (4)
  1. ASPIRIN. [Concomitant]
     Active Substance: ASPIRIN
     Route: 048
  2. BRILINTA [Suspect]
     Active Substance: TICAGRELOR
     Route: 048
     Dates: start: 20160307
  3. DILATREND [Concomitant]
     Active Substance: CARVEDILOL
  4. LIPITOR [Concomitant]
     Active Substance: ATORVASTATIN CALCIUM

REACTIONS (6)
  - Haemoptysis [Not Recovered/Not Resolved]
  - Cardiac arrest [Unknown]
  - Cerebral haemorrhage [Fatal]
  - Haematuria [Recovered/Resolved]
  - Vomiting [Unknown]
  - Pericardial haemorrhage [Unknown]

NARRATIVE: CASE EVENT DATE: 20160310
